FAERS Safety Report 8597957-4 (Version None)
Quarter: 2012Q3

REPORT INFORMATION
  Report Type: 
  Country: None (occurrence: None)
  Receive Date: 20120803
  Receipt Date: 20101116
  Transmission Date: 20120928
  Serious: Yes (Hospitalization)
  Sender: FDA-Public Use
  Company Number: 761827

PATIENT
  Age: 74 Year
  Sex: Male

DRUGS (7)
  1. ALLOPURINOL [Concomitant]
  2. (FERROUS SUCCINATE) [Concomitant]
  3. PRAVASTATIN [Concomitant]
  4. FLUOROURACIL [Suspect]
     Dosage: INTRAVENOUS (NOT OTHERWISE SPECIFIED)
     Route: 042
     Dates: start: 20090909, end: 20100127
  5. AVASTIN [Suspect]
     Indication: COLON CANCER METASTATIC
     Dosage: 400 MG MILLIGRAM(S), INTRAVENOUS (NOT OTHERWISE SPECIFIED)
     Route: 042
     Dates: start: 20090909, end: 20100113
  6. PANTOPRAZOLE [Concomitant]
  7. OXALIPLATIN [Suspect]
     Indication: COLON CANCER METASTATIC
     Dosage: 165 MG MILLIGRAM(S), INTRAVENOUS (NOT OTHERWISE SPECIFIED)
     Route: 042
     Dates: start: 20090909, end: 20100127

REACTIONS (8)
  - MONOPLEGIA [None]
  - ASTHENIA [None]
  - HYPOAESTHESIA [None]
  - COLON CANCER METASTATIC [None]
  - DISEASE PROGRESSION [None]
  - ATAXIA [None]
  - ISCHAEMIC STROKE [None]
  - CEREBRAL HAEMORRHAGE [None]
